FAERS Safety Report 25621862 (Version 1)
Quarter: 2025Q3

REPORT INFORMATION
  Report Type: Spontaneous
  Country: US (occurrence: US)
  Receive Date: 20250730
  Receipt Date: 20250730
  Transmission Date: 20251020
  Serious: No
  Sender: BIOCRYST PHARMACEUTICALS
  Company Number: US-BIOCRYST PHARMACEUTICALS, INC.-2025BCR00902

PATIENT

DRUGS (1)
  1. ORLADEYO [Suspect]
     Active Substance: BEROTRALSTAT HYDROCHLORIDE
     Indication: Hereditary angioedema

REACTIONS (7)
  - Faecal volume decreased [Not Recovered/Not Resolved]
  - Urine output decreased [Not Recovered/Not Resolved]
  - Vision blurred [Not Recovered/Not Resolved]
  - Muscle strength abnormal [Not Recovered/Not Resolved]
  - Fall [Unknown]
  - Pain [Not Recovered/Not Resolved]
  - Stress [Not Recovered/Not Resolved]

NARRATIVE: CASE EVENT DATE: 20250705
